FAERS Safety Report 15979754 (Version 2)
Quarter: 2019Q2

REPORT INFORMATION
  Report Type: Spontaneous
  Country: CA (occurrence: CA)
  Receive Date: 20190219
  Receipt Date: 20190615
  Transmission Date: 20190711
  Serious: Yes (Hospitalization, Other)
  Sender: FDA-Public Use
  Company Number: CA-009507513-1902CAN006500

PATIENT
  Age: 61 Year
  Sex: Female
  Weight: 84 kg

DRUGS (47)
  1. DOXORUBICIN HYDROCHLORIDE. [Suspect]
     Active Substance: DOXORUBICIN HYDROCHLORIDE
     Dosage: 1 EVERY 2 WEEK (S)
     Route: 042
  2. ONDANSETRON [Suspect]
     Active Substance: ONDANSETRON
     Dosage: 8 MILLIGRAM
     Route: 048
  3. ONDANSETRON [Suspect]
     Active Substance: ONDANSETRON
     Dosage: 8 MILLIGRAM
     Route: 048
  4. CITALOPRAM [Concomitant]
     Active Substance: CITALOPRAM HYDROBROMIDE
     Indication: PRODUCT USED FOR UNKNOWN INDICATION
     Dosage: 20 MILLIGRAM, 1 EVERY 1 DAY(S)
     Route: 048
  5. DEXAMETHASONE. [Concomitant]
     Active Substance: DEXAMETHASONE
     Dosage: 20 MILLIGRAM, 1 EVERY 1 DAY(S)
     Route: 048
  6. EMEND [Suspect]
     Active Substance: APREPITANT
     Dosage: 125 MILLIGRAM
     Route: 048
  7. EMEND [Suspect]
     Active Substance: APREPITANT
     Dosage: 125 MILLIGRAM
     Route: 048
  8. PREDNISONE. [Suspect]
     Active Substance: PREDNISONE
     Indication: ADVERSE EVENT
     Dosage: 30 MILLIGRAM, 1 EVERY 1 DAY(S)
     Route: 065
  9. DOXORUBICIN HYDROCHLORIDE. [Suspect]
     Active Substance: DOXORUBICIN HYDROCHLORIDE
     Dosage: 1 EVERY 2 WEEK (S)
     Route: 042
  10. ONDANSETRON [Suspect]
     Active Substance: ONDANSETRON
     Indication: SUPPORTIVE CARE
     Dosage: 8 MILLIGRAM
     Route: 048
  11. ONDANSETRON [Suspect]
     Active Substance: ONDANSETRON
     Dosage: 8 MILLIGRAM
     Route: 048
  12. TAMIFLU [Suspect]
     Active Substance: OSELTAMIVIR PHOSPHATE
     Indication: ADVERSE EVENT
     Dosage: 75 MILLIGRAM, 2 EVERY 1 DAY(S)
     Route: 065
  13. DEXAMETHASONE. [Concomitant]
     Active Substance: DEXAMETHASONE
     Indication: SUPPORTIVE CARE
     Dosage: 20 MILLIGRAM, 1 EVERY 1 DAY(S)
     Route: 048
  14. NAPROXEN. [Concomitant]
     Active Substance: NAPROXEN
     Indication: PRODUCT USED FOR UNKNOWN INDICATION
     Dosage: 220 MILLIGRAM
     Route: 048
  15. EMEND [Suspect]
     Active Substance: APREPITANT
     Dosage: 80 MILLIGRAM, 1 EVERY 1 DAY (S)
     Route: 048
  16. EMEND [Suspect]
     Active Substance: APREPITANT
     Dosage: 80 MILLIGRAM, 1 EVERY 1 DAY (S)
     Route: 048
  17. METOCLOPRAMIDE. [Suspect]
     Active Substance: METOCLOPRAMIDE
     Indication: PRODUCT USED FOR UNKNOWN INDICATION
     Dosage: 10 MILLIGRAM,1 EVERY 1 DAY(S)
     Route: 048
  18. PEGFILGRASTIM [Suspect]
     Active Substance: PEGFILGRASTIM
     Dosage: 6 MILLIGRAM
     Route: 058
  19. ACETAMINOPHEN. [Concomitant]
     Active Substance: ACETAMINOPHEN
     Indication: PRODUCT USED FOR UNKNOWN INDICATION
     Dosage: 1300 MILLIGRAM
     Route: 048
  20. PEGFILGRASTIM [Suspect]
     Active Substance: PEGFILGRASTIM
     Dosage: 6 MILLIGRAM
     Route: 058
  21. PROCYTOX [Suspect]
     Active Substance: CYCLOPHOSPHAMIDE
     Dosage: 1210 MILLIGRAM 1 EVERY 2 WEEKS
     Route: 042
  22. DEXAMETHASONE. [Concomitant]
     Active Substance: DEXAMETHASONE
     Dosage: 20 MILLIGRAM, 1 EVERY 1 DAY(S)
     Route: 048
  23. PREDNISONE. [Suspect]
     Active Substance: PREDNISONE
     Dosage: 40 MILLIGRAM, 1 EVERY 1 DAY(S)
     Route: 065
  24. ONDANSETRON [Suspect]
     Active Substance: ONDANSETRON
     Dosage: 8 MILLIGRAM
     Route: 048
  25. ONDANSETRON [Suspect]
     Active Substance: ONDANSETRON
     Dosage: 8 MILLIGRAM
     Route: 048
  26. PEGFILGRASTIM [Suspect]
     Active Substance: PEGFILGRASTIM
     Indication: SUPPORTIVE CARE
     Dosage: 6 MILLIGRAM
     Route: 058
  27. PROCYTOX [Suspect]
     Active Substance: CYCLOPHOSPHAMIDE
     Dosage: 1210 MILLIGRAM 1 EVERY 2 WEEKS
     Route: 042
  28. HYDROMORPHONE [Concomitant]
     Active Substance: HYDROMORPHONE
     Indication: PRODUCT USED FOR UNKNOWN INDICATION
     Dosage: 2 MILLIGRAM
     Route: 048
  29. PACLITAXEL. [Concomitant]
     Active Substance: PACLITAXEL
     Indication: BREAST CANCER
     Route: 065
  30. DOXORUBICIN HYDROCHLORIDE. [Suspect]
     Active Substance: DOXORUBICIN HYDROCHLORIDE
     Indication: BREAST CANCER
     Dosage: 1 EVERY 2 WEEK (S)
     Route: 042
  31. PEGFILGRASTIM [Suspect]
     Active Substance: PEGFILGRASTIM
     Dosage: 6 MILLIGRAM
     Route: 058
  32. PROCYTOX [Suspect]
     Active Substance: CYCLOPHOSPHAMIDE
     Dosage: 1210 MILLIGRAM 1 EVERY 2 WEEKS
     Route: 042
  33. EMEND [Suspect]
     Active Substance: APREPITANT
     Dosage: 80 MILLIGRAM, 1 EVERY 1 DAY (S)
     Route: 048
  34. EMEND [Suspect]
     Active Substance: APREPITANT
     Dosage: 125 MILLIGRAM
  35. ONDANSETRON [Suspect]
     Active Substance: ONDANSETRON
     Dosage: 8 MILLIGRAM
     Route: 048
  36. ONDANSETRON [Suspect]
     Active Substance: ONDANSETRON
     Dosage: 8 MILLIGRAM
     Route: 048
  37. PEGFILGRASTIM [Suspect]
     Active Substance: PEGFILGRASTIM
     Dosage: 6 MILLGRAM
     Route: 058
  38. PEGFILGRASTIM [Suspect]
     Active Substance: PEGFILGRASTIM
     Dosage: 6 MILLIGRAM
     Route: 058
  39. PROCYTOX [Suspect]
     Active Substance: CYCLOPHOSPHAMIDE
     Indication: BREAST CANCER
     Dosage: 1210 MILLIGRAM 1 EVERY 2 WEEKS
     Route: 042
  40. EMEND [Suspect]
     Active Substance: APREPITANT
     Indication: SUPPORTIVE CARE
     Dosage: 125 MILLIGRAM
     Route: 048
  41. EMEND [Suspect]
     Active Substance: APREPITANT
     Dosage: 80 MILLIGRAM, 1 EVERY 1 DAY (S)
     Route: 048
  42. DOXORUBICIN HYDROCHLORIDE. [Suspect]
     Active Substance: DOXORUBICIN HYDROCHLORIDE
     Dosage: 1 EVERY 2 WEEK (S)
     Route: 042
  43. LEVAQUIN [Suspect]
     Active Substance: LEVOFLOXACIN
     Indication: ADVERSE EVENT
     Dosage: 500 MILLIGRAM,1 EVERY 1 DAY(S)
     Route: 048
  44. PANTOPRAZOLE [Suspect]
     Active Substance: PANTOPRAZOLE
     Indication: PRODUCT USED FOR UNKNOWN INDICATION
     Dosage: 40 MILLIGRAM, 1 EVERY 1 DAY(S)
     Route: 048
  45. PEGFILGRASTIM [Suspect]
     Active Substance: PEGFILGRASTIM
     Dosage: 6 MILLIGRAM
     Route: 058
  46. TRASTUZUMAB. [Suspect]
     Active Substance: TRASTUZUMAB
     Indication: BREAST CANCER
     Route: 065
  47. GABAPENTIN. [Concomitant]
     Active Substance: GABAPENTIN
     Indication: PRODUCT USED FOR UNKNOWN INDICATION
     Route: 048

REACTIONS (8)
  - Decreased appetite [Recovering/Resolving]
  - Dyspnoea [Recovering/Resolving]
  - Atelectasis [Recovering/Resolving]
  - Asthenia [Recovering/Resolving]
  - Gastrointestinal disorder [Recovering/Resolving]
  - Respiratory syncytial virus infection [Recovering/Resolving]
  - Respiratory failure [Recovering/Resolving]
  - Nausea [Recovering/Resolving]
